FAERS Safety Report 6272142-X (Version None)
Quarter: 2009Q3

REPORT INFORMATION
  Report Type: 
  Country: None (occurrence: None)
  Receive Date: 20090717
  Receipt Date: 20090706
  Transmission Date: 20100115
  Serious: Yes (Other)
  Sender: FDA-Public Use
  Company Number: AU-PFIZER INC-2009237311

PATIENT

DRUGS (3)
  1. DILANTIN [Suspect]
     Indication: CONVULSION
  2. DILANTIN [Suspect]
  3. ZOLOFT [Concomitant]

REACTIONS (3)
  - AGGRESSION [None]
  - AMNESIA [None]
  - ANTICONVULSANT DRUG LEVEL ABNORMAL [None]
